FAERS Safety Report 7531537-4 (Version None)
Quarter: 2011Q2

REPORT INFORMATION
  Report Type: 
  Country: None (occurrence: None)
  Receive Date: 20110606
  Receipt Date: 20110606
  Transmission Date: 20111010
  Serious: Yes (Hospitalization)
  Sender: FDA-Public Use
  Company Number: None

PATIENT
  Age: 24 Year
  Sex: Female

DRUGS (1)
  1. FLUCONAZOLE [Suspect]
     Dosage: 1 TAB X1 PO
     Route: 048

REACTIONS (13)
  - ERYTHEMA [None]
  - FUNGAL INFECTION [None]
  - STEVENS-JOHNSON SYNDROME [None]
  - SELF-MEDICATION [None]
  - SKIN EXFOLIATION [None]
  - HERPES VIRUS INFECTION [None]
  - VULVOVAGINAL PRURITUS [None]
  - VULVAL ULCERATION [None]
  - ODYNOPHAGIA [None]
  - ERYTHEMA MULTIFORME [None]
  - ANAL PRURITUS [None]
  - RASH [None]
  - LIP ULCERATION [None]
